FAERS Safety Report 7744430-9 (Version None)
Quarter: 2011Q3

REPORT INFORMATION
  Report Type: 
  Country: None (occurrence: None)
  Receive Date: 20110912
  Receipt Date: 20110905
  Transmission Date: 20111222
  Serious: Yes (Life-Threatening)
  Sender: FDA-Public Use
  Company Number: FR-CELGENEUS-056-50794-11090487

PATIENT
  Sex: Female

DRUGS (4)
  1. LEVOTHYROXINE SODIUM [Concomitant]
     Indication: HYPOTHYROIDISM
     Dosage: 50 MICROGRAM
     Route: 048
  2. VIDAZA [Suspect]
     Dosage: 110MG
     Route: 058
     Dates: start: 20101130, end: 20101206
  3. APROVEL [Concomitant]
     Dosage: 150 MILLIGRAM
     Route: 048
  4. SOTALOL HCL [Concomitant]
     Dosage: 160 MILLIGRAM
     Route: 048
     Dates: end: 20101202

REACTIONS (2)
  - ATRIAL FIBRILLATION [None]
  - ACUTE CORONARY SYNDROME [None]
